FAERS Safety Report 23745808 (Version 1)
Quarter: 2024Q2

REPORT INFORMATION
  Report Type: Spontaneous
  Country: AU (occurrence: AU)
  Receive Date: 20240416
  Receipt Date: 20240416
  Transmission Date: 20240716
  Serious: Yes (Other)
  Sender: FDA-Public Use
  Company Number: AU-JNJFOC-20240424942

PATIENT
  Sex: Female

DRUGS (3)
  1. SPRAVATO [Suspect]
     Active Substance: ESKETAMINE
     Indication: Product used for unknown indication
     Dosage: UNSPECIFIED DOSE
  2. SPRAVATO [Suspect]
     Active Substance: ESKETAMINE
  3. SPRAVATO [Suspect]
     Active Substance: ESKETAMINE

REACTIONS (1)
  - Pancreatitis [Unknown]
